FAERS Safety Report 13940168 (Version 2)
Quarter: 2017Q4

REPORT INFORMATION
  Report Type: Spontaneous
  Country: FR (occurrence: FR)
  Receive Date: 20170906
  Receipt Date: 20171010
  Transmission Date: 20180320
  Serious: Yes (Hospitalization, Other)
  Sender: FDA-Public Use
  Company Number: FR-VIIV HEALTHCARE LIMITED-FR2017GSK137480

PATIENT
  Age: 46 Year
  Sex: Male
  Weight: 68 kg

DRUGS (2)
  1. RISPERDAL [Concomitant]
     Active Substance: RISPERIDONE
     Indication: PRODUCT USED FOR UNKNOWN INDICATION
     Dosage: 1 MG, 1D
  2. TRIUMEQ [Suspect]
     Active Substance: ABACAVIR SULFATE\DOLUTEGRAVIR SODIUM\LAMIVUDINE
     Indication: HIV INFECTION
     Dosage: 1 DF, 1D
     Route: 048
     Dates: start: 2017, end: 20170728

REACTIONS (4)
  - Psychiatric decompensation [Unknown]
  - Schizophrenia [Recovering/Resolving]
  - Delirium [Recovering/Resolving]
  - Logorrhoea [Recovering/Resolving]

NARRATIVE: CASE EVENT DATE: 2017
